FAERS Safety Report 4717904-2 (Version None)
Quarter: 2005Q3

REPORT INFORMATION
  Report Type: 
  Country: None (occurrence: None)
  Receive Date: 20050718
  Receipt Date: 20050125
  Transmission Date: 20060218
  Serious: No
  Sender: FDA-Public Use
  Company Number: 2005000196

PATIENT
  Sex: Female

DRUGS (2)
  1. TARCEVA [Suspect]
     Indication: BREAST CANCER
     Dosage: 150 MG (QD), ORAL;  75 MG (QD), ORAL
     Route: 048
     Dates: end: 20050120
  2. TARCEVA [Suspect]
     Indication: BREAST CANCER
     Dosage: 150 MG (QD), ORAL;  75 MG (QD), ORAL
     Route: 048
     Dates: start: 20050120

REACTIONS (5)
  - BLOOD BILIRUBIN INCREASED [None]
  - CONJUNCTIVITIS [None]
  - DERMATITIS [None]
  - DIARRHOEA [None]
  - ENTERITIS [None]
